FAERS Safety Report 10047185 (Version 2)
Quarter: 2014Q1

REPORT INFORMATION
  Report Type: Spontaneous
  Country: US (occurrence: US)
  Receive Date: 20140331
  Receipt Date: 20140331
  Transmission Date: 20141002
  Serious: No
  Sender: FDA-Public Use
  Company Number: US-MYLANLABS-2013S1017553

PATIENT
  Age: 46 Year
  Sex: Female
  Weight: 58.97 kg

DRUGS (7)
  1. FENTANYL TRANSDERMAL SYSTEM [Suspect]
     Indication: PAIN
     Dosage: CHANGES Q 72HR
     Route: 062
     Dates: start: 201307
  2. LORTAB [Concomitant]
     Dosage: 7.5MG/500MG
  3. NEURONTIN [Concomitant]
  4. XANAX [Concomitant]
  5. PAXIL /00500401/ [Concomitant]
  6. ZYRTEC [Concomitant]
  7. DENOSUMAB [Concomitant]

REACTIONS (1)
  - Skin exfoliation [Recovered/Resolved]
